FAERS Safety Report 21213133 (Version 1)
Quarter: 2022Q3

REPORT INFORMATION
  Report Type: Spontaneous
  Country: US (occurrence: None)
  Receive Date: 20220815
  Receipt Date: 20220815
  Transmission Date: 20221027
  Serious: No
  Sender: FDA-Public Use
  Company Number: None

PATIENT
  Age: 45 Year
  Sex: Female
  Weight: 77.4 kg

DRUGS (1)
  1. CLENPIQ [Suspect]
     Active Substance: ANHYDROUS CITRIC ACID\MAGNESIUM OXIDE\SODIUM PICOSULFATE
     Indication: Colonoscopy
     Dosage: OTHER STRENGTH : 160 ML BOTTLE;?OTHER QUANTITY : 1 160 ML BOTTLE;?OTHER FREQUENCY : TWICE;?
     Route: 048
     Dates: start: 20220810, end: 20220811

REACTIONS (6)
  - Abdominal pain [None]
  - Dysstasia [None]
  - Pain [None]
  - Arthralgia [None]
  - Chest pain [None]
  - Abdominal pain upper [None]

NARRATIVE: CASE EVENT DATE: 20220810
